FAERS Safety Report 9333069 (Version 1)
Quarter: 2013Q2

REPORT INFORMATION
  Report Type: Report from Study
  Country: US (occurrence: US)
  Receive Date: 20130606
  Receipt Date: 20130606
  Transmission Date: 20140414
  Serious: Yes (Hospitalization)
  Sender: FDA-Public Use
  Company Number: US-009507513-1208USA001541

PATIENT
  Age: 45 Year
  Sex: Female
  Weight: 65.4 kg

DRUGS (18)
  1. RIBAVIRIN [Suspect]
     Indication: HEPATITIS C
     Dosage: 1000 MG, Q12H
     Route: 048
     Dates: start: 20120628, end: 20120717
  2. RIBAVIRIN [Suspect]
     Indication: HIV INFECTION
  3. PEGINTERFERON ALFA-2B [Suspect]
     Indication: HEPATITIS C
     Dosage: 96 MICROGRAM, QW
     Route: 058
     Dates: start: 20120628, end: 20120712
  4. ATRIPLA [Concomitant]
     Indication: HIV INFECTION
     Dosage: UNK
     Dates: start: 201011
  5. ACYCLOVIR [Concomitant]
     Dosage: APPLY Q4HR PRN SORE
  6. PROAIR (ALBUTEROL SULFATE) [Concomitant]
     Dosage: 1-2 PUFFS Q6HR PRN WHEEZE
     Dates: start: 20080728
  7. BETAMETHASONE DIPROPIONATE [Concomitant]
     Dosage: APPLY DAILY PRN RASH
  8. CLOTRIMAZOLE [Concomitant]
     Dosage: APPLY BID PRN RASH
  9. CITALOPRAM HYDROBROMIDE [Concomitant]
     Dosage: 1 DF, QD
     Dates: start: 20100428
  10. CODEINE SULFATE [Concomitant]
     Dosage: 1 TABLET, Q6H AS NEEDED
  11. FAMOTIDINE [Concomitant]
     Dosage: 1 TABLET AT BED TIME PRN
     Dates: start: 20120213
  12. FLUCONAZOLE [Concomitant]
     Dosage: 2 DF, QD
     Dates: start: 20120316
  13. IBUPROFEN [Concomitant]
     Dosage: 1 DF, Q6H
     Dates: start: 20100614
  14. LORAZEPAM [Concomitant]
     Dosage: 1 DF, BID
     Route: 048
     Dates: start: 20101129
  15. METHADONE HCL [Concomitant]
     Dosage: 140 MG, QD
     Route: 048
  16. PROCHLORPERAZINE MALEATE [Concomitant]
     Dosage: 1 DF, TID AS NEEDED
  17. VALACYCLOVIR HYDROCHLORIDE [Concomitant]
     Dosage: 1 DF, QD
     Route: 048
     Dates: start: 20100812
  18. CHANTIX [Concomitant]
     Dosage: UNK
     Dates: start: 20100803

REACTIONS (1)
  - Abscess [Recovered/Resolved]
